FAERS Safety Report 7909282-2 (Version None)
Quarter: 2011Q4

REPORT INFORMATION
  Report Type: 
  Country: None (occurrence: None)
  Receive Date: 20111111
  Receipt Date: 20111109
  Transmission Date: 20120403
  Serious: Yes (Hospitalization)
  Sender: FDA-Public Use
  Company Number: JP-PFIZER INC-2010048909

PATIENT
  Age: 63 Year
  Sex: Male

DRUGS (4)
  1. SUNITINIB MALATE [Suspect]
     Dosage: 37.5 MG, 1X/DAY
     Route: 048
     Dates: start: 20100217
  2. SPIRONOLACTONE [Concomitant]
  3. SUNITINIB MALATE [Suspect]
     Indication: RENAL CELL CARCINOMA
     Dosage: 50 MG, 1X/DAY
     Route: 048
     Dates: start: 20100203
  4. FUROSEMIDE [Concomitant]

REACTIONS (4)
  - MALAISE [None]
  - FALL [None]
  - SYNCOPE [None]
  - VOMITING [None]
